FAERS Safety Report 4865120-6 (Version None)
Quarter: 2005Q4

REPORT INFORMATION
  Report Type: 
  Country: None (occurrence: None)
  Receive Date: 20051221
  Receipt Date: 20051221
  Transmission Date: 20060501
  Serious: Yes (Disabling)
  Sender: FDA-Public Use
  Company Number: None

PATIENT
  Age: 72 Year
  Sex: Female
  Weight: 58.5 kg

DRUGS (1)
  1. CETACAINE SPRAY [Suspect]
     Indication: ECHOCARDIOGRAM
     Dosage: SPRAY AS NEEDED TOP
     Route: 061
     Dates: start: 20051024, end: 20051024

REACTIONS (2)
  - OXYGEN SATURATION DECREASED [None]
  - POST PROCEDURAL COMPLICATION [None]
